FAERS Safety Report 5529051-0 (Version None)
Quarter: 2007Q4

REPORT INFORMATION
  Report Type: 
  Country: None (occurrence: None)
  Receive Date: 20071129
  Receipt Date: 20061005
  Transmission Date: 20080405
  Serious: No
  Sender: FDA-Public Use
  Company Number: A0622486A

PATIENT
  Age: 52 Year
  Sex: Female

DRUGS (10)
  1. WELLBUTRIN SR [Suspect]
     Indication: DEPRESSION
     Dosage: 150MG PER DAY
     Route: 048
  2. LYRICA [Suspect]
     Indication: PAIN
     Dates: start: 20060301, end: 20060501
  3. TOPAMAX [Suspect]
     Indication: PAIN
     Dates: start: 20060401, end: 20060501
  4. ENBREL [Suspect]
     Dates: start: 20060101
  5. BUPROPION HYDROCHLORIDE [Suspect]
     Indication: DEPRESSION
     Dosage: 100MG TWICE PER DAY
     Route: 048
  6. ESTRADIOL [Concomitant]
  7. PLAQUENIL [Concomitant]
     Indication: AUTOIMMUNE DISORDER
     Dates: start: 20060930
  8. LUNESTA [Concomitant]
  9. AMBIEN [Concomitant]
     Dates: start: 20060901
  10. XANAX [Concomitant]
     Indication: ANXIETY

REACTIONS (3)
  - ALOPECIA [None]
  - BURNING SENSATION [None]
  - SKIN BURNING SENSATION [None]
